FAERS Safety Report 14365991 (Version 2)
Quarter: 2018Q1

REPORT INFORMATION
  Report Type: Spontaneous
  Country: FR (occurrence: FR)
  Receive Date: 20180109
  Receipt Date: 20180118
  Transmission Date: 20180509
  Serious: Yes (Other)
  Sender: FDA-Public Use
  Company Number: FR-TEVA-2017-FR-841761

PATIENT
  Age: 45 Year
  Sex: Female
  Weight: 100 kg

DRUGS (5)
  1. MIANSERIN [Concomitant]
     Active Substance: MIANSERIN
     Indication: BIPOLAR DISORDER
     Dosage: 40 MG/DAY
     Route: 065
  2. LITHIUM. [Concomitant]
     Active Substance: LITHIUM
     Indication: BIPOLAR DISORDER
     Dosage: 800 MG /DAY
     Route: 065
  3. LOXAPAC [Interacting]
     Active Substance: LOXAPINE
     Indication: BIPOLAR DISORDER
     Dosage: 300MG
     Route: 042
  4. LORAZEPAM. [Concomitant]
     Active Substance: LORAZEPAM
     Indication: BIPOLAR DISORDER
     Dosage: 5 MG/DAY IN THREE DOSES
     Route: 065
  5. SODIUM VALPROATE [Suspect]
     Active Substance: VALPROATE SODIUM
     Indication: BIPOLAR DISORDER
     Route: 065

REACTIONS (7)
  - Catatonia [Recovered/Resolved]
  - Drug interaction [Unknown]
  - Musculoskeletal stiffness [Unknown]
  - Toxicity to various agents [Unknown]
  - Neuroleptic malignant syndrome [Recovered/Resolved]
  - Extrapyramidal disorder [Unknown]
  - Rhabdomyolysis [Unknown]
